FAERS Safety Report 8407557-4 (Version None)
Quarter: 2012Q2

REPORT INFORMATION
  Report Type: 
  Country: None (occurrence: None)
  Receive Date: 20120604
  Receipt Date: 20120525
  Transmission Date: 20120825
  Serious: Yes (Other)
  Sender: FDA-Public Use
  Company Number: JP-VERTEX PHARMACEUTICALS INC.-AE-2012-004090

PATIENT
  Age: 53 Year
  Sex: Male

DRUGS (10)
  1. PEGINTERFERON [Concomitant]
     Route: 051
     Dates: start: 20120111, end: 20120507
  2. TELAVIC (TELAPREVIR) [Suspect]
     Indication: HEPATITIS C
     Route: 048
     Dates: start: 20111130
  3. RIBAVIRIN [Concomitant]
     Route: 048
     Dates: start: 20120102, end: 20120228
  4. RIBAVIRIN [Concomitant]
     Route: 048
     Dates: start: 20120229, end: 20120516
  5. SELTOUCH [Concomitant]
     Route: 061
  6. POSTERISAN [Concomitant]
     Route: 061
  7. PEGINTERFERON [Concomitant]
     Indication: HEPATITIS C
     Route: 051
     Dates: start: 20111130, end: 20120104
  8. RIBAVIRIN [Concomitant]
     Route: 048
     Dates: start: 20120111, end: 20120131
  9. MUCOSTA [Concomitant]
     Route: 048
  10. RIBAVIRIN [Concomitant]
     Indication: HEPATITIS C
     Route: 048
     Dates: start: 20111130, end: 20120110

REACTIONS (1)
  - RETINOPATHY [None]
